FAERS Safety Report 4777157-6 (Version None)
Quarter: 2005Q3

REPORT INFORMATION
  Report Type: 
  Country: None (occurrence: None)
  Receive Date: 20050923
  Receipt Date: 20050912
  Transmission Date: 20060218
  Serious: Yes (Other)
  Sender: FDA-Public Use
  Company Number: GB-ROCHE-417849

PATIENT
  Age: 15 Year
  Sex: Male

DRUGS (1)
  1. ROACCUTANE [Suspect]
     Indication: ACNE
     Dosage: DOSE WAS INCREASED, THEN DECREASED.
     Route: 048
     Dates: start: 20050222, end: 20050830

REACTIONS (2)
  - CIRCULATORY COLLAPSE [None]
  - DIZZINESS [None]
